FAERS Safety Report 7844643-1 (Version None)
Quarter: 2011Q4

REPORT INFORMATION
  Report Type: 
  Country: None (occurrence: None)
  Receive Date: 20111025
  Receipt Date: 20111018
  Transmission Date: 20120403
  Serious: Yes (Other)
  Sender: FDA-Public Use
  Company Number: US-JNJFOC-20100607456

PATIENT
  Sex: Male
  Weight: 17.24 kg

DRUGS (4)
  1. CHILDREN'S TYLENOL SUSPENSION [Suspect]
     Indication: PYREXIA
     Route: 048
     Dates: start: 20100204, end: 20100220
  2. CHILDREN'S TYLENOL SUSPENSION [Suspect]
     Route: 048
  3. CHILDREN'S MOTRIN [Suspect]
  4. CHILDREN'S MOTRIN [Suspect]
     Indication: PYREXIA
     Dates: start: 20100204

REACTIONS (6)
  - PRODUCT QUALITY ISSUE [None]
  - PYREXIA [None]
  - EYE INFECTION [None]
  - INCORRECT DRUG ADMINISTRATION DURATION [None]
  - BRONCHITIS BACTERIAL [None]
  - DRUG INEFFECTIVE [None]
